FAERS Safety Report 17351343 (Version 1)
Quarter: 2020Q1

REPORT INFORMATION
  Report Type: Report from Study
  Country: RU (occurrence: RU)
  Receive Date: 20200130
  Receipt Date: 20200130
  Transmission Date: 20200409
  Serious: Yes (Hospitalization)
  Sender: FDA-Public Use
  Company Number: RU-AMGEN-RUSNI2020014591

PATIENT
  Age: 49 Year
  Sex: Female
  Weight: 53 kg

DRUGS (1)
  1. PANITUMUMAB [Suspect]
     Active Substance: PANITUMUMAB
     Indication: COLORECTAL CANCER METASTATIC
     Dosage: UNK MILLIGRAMS
     Route: 042
     Dates: start: 20190913

REACTIONS (1)
  - Disease progression [Recovered/Resolved]

NARRATIVE: CASE EVENT DATE: 20191122
